FAERS Safety Report 16647939 (Version 6)
Quarter: 2020Q4

REPORT INFORMATION
  Report Type: Spontaneous
  Country: US (occurrence: US)
  Receive Date: 20190730
  Receipt Date: 20201029
  Transmission Date: 20210113
  Serious: Yes (Other)
  Sender: FDA-Public Use
  Company Number: US-INCYTE CORPORATION-2019IN007570

PATIENT

DRUGS (4)
  1. JAKAFI [Suspect]
     Active Substance: RUXOLITINIB
     Dosage: 10 MILLIGRAM, BID
     Route: 048
     Dates: start: 20190710
  2. JAKAFI [Suspect]
     Active Substance: RUXOLITINIB
     Dosage: 10 MILLIGRAM (TWO 5 MG TABLETS), BID
     Route: 048
     Dates: start: 20200121
  3. JAKAFI [Suspect]
     Active Substance: RUXOLITINIB
     Indication: GRAFT VERSUS HOST DISEASE IN LUNG
     Dosage: 10 MILLIGRAM (5 MG TABS), BID
     Route: 048
     Dates: start: 201907
  4. JAKAFI [Suspect]
     Active Substance: RUXOLITINIB
     Indication: CHRONIC GRAFT VERSUS HOST DISEASE
     Dosage: 5 MILLIGRAM, BID
     Route: 048
     Dates: start: 20190710

REACTIONS (7)
  - Vomiting [Recovered/Resolved]
  - Dyspnoea [Recovered/Resolved]
  - Condition aggravated [Unknown]
  - Off label use [Unknown]
  - Nausea [Recovered/Resolved]
  - Asthma [Unknown]
  - Chills [Unknown]

NARRATIVE: CASE EVENT DATE: 20190710
